FAERS Safety Report 7152614-6 (Version None)
Quarter: 2010Q4

REPORT INFORMATION
  Report Type: 
  Country: None (occurrence: None)
  Receive Date: 20101209
  Receipt Date: 20101209
  Transmission Date: 20110411
  Serious: No
  Sender: FDA-Public Use
  Company Number: None

PATIENT
  Sex: Male
  Weight: 73.3 kg

DRUGS (1)
  1. ERBITUX [Suspect]
     Dosage: 220 MG
     Dates: end: 20100728

REACTIONS (1)
  - NEUTROPHIL COUNT DECREASED [None]
